FAERS Safety Report 7589174-1 (Version None)
Quarter: 2011Q3

REPORT INFORMATION
  Report Type: 
  Country: None (occurrence: None)
  Receive Date: 20110705
  Receipt Date: 20100921
  Transmission Date: 20111222
  Serious: Yes (Other)
  Sender: FDA-Public Use
  Company Number: US-BAYER-201019522NA

PATIENT
  Age: 57 Year
  Sex: Female
  Weight: 101 kg

DRUGS (34)
  1. MAGNEVIST [Suspect]
     Dosage: UNK, ONCE
     Dates: start: 20050405, end: 20050405
  2. PROHANCE [Suspect]
     Indication: ANGIOGRAM
     Route: 042
  3. PHENYTEK [Concomitant]
  4. METOPROLOL TARTRATE [Concomitant]
  5. UNSPECIFIED GADOLINIUM BASED CONTRAST AGENT [Suspect]
     Indication: NUCLEAR MAGNETIC RESONANCE IMAGING
     Route: 042
     Dates: start: 20060321, end: 20060321
  6. UNSPECIFIED GADOLINIUM BASED CONTRAST AGENT [Suspect]
     Dosage: UNK UNK, ONCE
     Dates: start: 20050405, end: 20050405
  7. MULTIHANCE [Suspect]
     Indication: NUCLEAR MAGNETIC RESONANCE IMAGING
  8. NEURONTIN [Concomitant]
  9. ARIXTRA [Concomitant]
  10. PLAVIX [Concomitant]
  11. MAGNEVIST [Suspect]
     Indication: NUCLEAR MAGNETIC RESONANCE IMAGING BRAIN
     Dosage: UNK, ONCE
     Route: 042
     Dates: start: 20060321, end: 20060321
  12. UNSPECIFIED GADOLINIUM BASED CONTRAST AGENT [Suspect]
     Dosage: UNK UNK, ONCE
     Route: 042
     Dates: start: 20060201, end: 20060201
  13. MULTIHANCE [Suspect]
     Indication: ANGIOGRAM
     Route: 042
  14. PROHANCE [Suspect]
     Indication: NUCLEAR MAGNETIC RESONANCE IMAGING
  15. RENAGEL [Concomitant]
  16. ARANESP [Concomitant]
  17. COUMADIN [Concomitant]
  18. OPTIMARK [Suspect]
     Indication: ANGIOGRAM
     Route: 042
  19. OPTIMARK [Suspect]
     Indication: NUCLEAR MAGNETIC RESONANCE IMAGING
  20. LANTUS [Concomitant]
  21. LEVETIRACETAM [Concomitant]
  22. UNSPECIFIED GADOLINIUM BASED CONTRAST AGENT [Suspect]
     Dosage: UNK, ONCE
     Route: 042
     Dates: start: 20070108, end: 20070108
  23. OMNISCAN [Suspect]
     Indication: ANGIOGRAM
     Route: 042
  24. FOSRENOL [Concomitant]
  25. DILANTIN [Concomitant]
  26. UNSPECIFIED GADOLINIUM BASED CONTRAST AGENT [Suspect]
     Indication: NUCLEAR MAGNETIC RESONANCE IMAGING BRAIN
     Dosage: UNK UNK, ONCE
     Dates: start: 20040422, end: 20040422
  27. UNSPECIFIED GADOLINIUM BASED CONTRAST AGENT [Suspect]
  28. NOVOLOG [Concomitant]
  29. MAGNEVIST [Suspect]
     Indication: NUCLEAR MAGNETIC RESONANCE IMAGING
     Dosage: UNK UNK, ONCE
     Route: 042
     Dates: start: 20040422, end: 20040422
  30. MAGNEVIST [Suspect]
     Dosage: UNK, ONCE
     Route: 042
     Dates: start: 20060201, end: 20060201
  31. OMNISCAN [Suspect]
     Indication: NUCLEAR MAGNETIC RESONANCE IMAGING
  32. PHOSLO [Concomitant]
  33. HYDROCODONE BITARTRATE [Concomitant]
  34. LORAZEPAM [Concomitant]

REACTIONS (18)
  - PAIN [None]
  - SKIN INDURATION [None]
  - ERYTHEMA [None]
  - OEDEMA PERIPHERAL [None]
  - MUSCULAR WEAKNESS [None]
  - GENERAL PHYSICAL HEALTH DETERIORATION [None]
  - SKIN FIBROSIS [None]
  - SKIN PLAQUE [None]
  - JOINT RANGE OF MOTION DECREASED [None]
  - PRURITUS [None]
  - SKIN HYPERTROPHY [None]
  - SKIN BURNING SENSATION [None]
  - SKIN TIGHTNESS [None]
  - NEPHROGENIC SYSTEMIC FIBROSIS [None]
  - SKIN DISCOLOURATION [None]
  - SKIN SWELLING [None]
  - MOBILITY DECREASED [None]
  - SKIN LESION [None]
